FAERS Safety Report 8142920-0 (Version None)
Quarter: 2012Q1

REPORT INFORMATION
  Report Type: 
  Country: None (occurrence: None)
  Receive Date: 20120217
  Receipt Date: 20120209
  Transmission Date: 20120608
  Serious: Yes (Death)
  Sender: FDA-Public Use
  Company Number: US-BIOGENIDEC-2012BI005021

PATIENT
  Age: 74 Year
  Sex: Male

DRUGS (4)
  1. AVONEX [Suspect]
     Indication: MULTIPLE SCLEROSIS
     Route: 030
     Dates: start: 19961201, end: 20111001
  2. BACLOFEN [Concomitant]
  3. PROZAC [Concomitant]
  4. LYRICA [Concomitant]

REACTIONS (1)
  - MULTIPLE SCLEROSIS [None]
